FAERS Safety Report 16782460 (Version 1)
Quarter: 2019Q4

REPORT INFORMATION
  Report Type: Spontaneous
  Country: US (occurrence: US)
  Receive Date: 20190906
  Receipt Date: 20190906
  Transmission Date: 20200122
  Serious: Yes (Hospitalization)
  Sender: FDA-Public Use
  Company Number: None

PATIENT
  Age: 40 Year
  Sex: Male
  Weight: 64 kg

DRUGS (3)
  1. FARXIGA [Suspect]
     Active Substance: DAPAGLIFLOZIN PROPANEDIOL
     Indication: TYPE 1 DIABETES MELLITUS
     Dates: start: 20171030, end: 20190905
  2. INSULIN LISPRO [Concomitant]
     Active Substance: INSULIN LISPRO
  3. METFORMIN [Concomitant]
     Active Substance: METFORMIN HYDROCHLORIDE

REACTIONS (2)
  - Off label use [None]
  - Euglycaemic diabetic ketoacidosis [None]

NARRATIVE: CASE EVENT DATE: 20190905
